FAERS Safety Report 25274036 (Version 1)
Quarter: 2025Q2

REPORT INFORMATION
  Report Type: Spontaneous
  Country: JP (occurrence: JP)
  Receive Date: 20250506
  Receipt Date: 20250506
  Transmission Date: 20250716
  Serious: Yes (Other)
  Sender: EISAI
  Company Number: JP-Eisai-202501388_LEN-RCC_P_1

PATIENT
  Age: 50 Year
  Sex: Male

DRUGS (4)
  1. LENVATINIB [Suspect]
     Active Substance: LENVATINIB
     Indication: Renal cancer
     Route: 048
  2. LENVATINIB [Suspect]
     Active Substance: LENVATINIB
     Route: 048
  3. KEYTRUDA [Concomitant]
     Active Substance: PEMBROLIZUMAB
     Indication: Renal cancer
     Route: 041
  4. KEYTRUDA [Concomitant]
     Active Substance: PEMBROLIZUMAB
     Route: 041

REACTIONS (2)
  - Adrenal insufficiency [Unknown]
  - Adrenocorticotropic hormone deficiency [Unknown]
